FAERS Safety Report 8075875-8 (Version None)
Quarter: 2012Q1

REPORT INFORMATION
  Report Type: 
  Country: None (occurrence: None)
  Receive Date: 20120125
  Receipt Date: 20120125
  Transmission Date: 20120608
  Serious: No
  Sender: FDA-Public Use
  Company Number: None

PATIENT
  Age: 60 Year
  Sex: Male
  Weight: 95.8 kg

DRUGS (3)
  1. DULOXETIME HYDROCHLORIDE [Suspect]
     Indication: PAIN
     Dosage: 60 MG EVERY DAY PO
     Route: 048
     Dates: start: 20110916, end: 20120124
  2. DULOXETIME HYDROCHLORIDE [Suspect]
     Indication: DEPRESSION
     Dosage: 60 MG EVERY DAY PO
     Route: 048
     Dates: start: 20110916, end: 20120124
  3. SIMVASTATIN [Suspect]
     Indication: HYPERLIPIDAEMIA
     Dosage: 20 MG EVERY DAY PO
     Route: 048
     Dates: start: 20000217

REACTIONS (1)
  - HEPATIC ENZYME INCREASED [None]
